FAERS Safety Report 11483520 (Version 1)
Quarter: 2015Q3

REPORT INFORMATION
  Report Type: Spontaneous
  Country: US (occurrence: US)
  Receive Date: 20150903
  Receipt Date: 20150903
  Transmission Date: 20151125
  Serious: No
  Sender: FDA-Public Use
  Company Number: US-ELI_LILLY_AND_COMPANY-US201207002050

PATIENT
  Sex: Female

DRUGS (2)
  1. CYMBALTA [Suspect]
     Active Substance: DULOXETINE HYDROCHLORIDE
     Dosage: 30 MG, BID
     Route: 065
     Dates: start: 20120613
  2. CYMBALTA [Suspect]
     Active Substance: DULOXETINE HYDROCHLORIDE
     Indication: DEPRESSION
     Dosage: 30 MG, QD
     Route: 065
     Dates: start: 20120605, end: 20120612

REACTIONS (7)
  - Thirst [Unknown]
  - Dyspepsia [Unknown]
  - Dysgeusia [Unknown]
  - Sedation [Unknown]
  - Initial insomnia [Unknown]
  - Constipation [Unknown]
  - Somnolence [Unknown]
